FAERS Safety Report 4576491-2 (Version None)
Quarter: 2005Q1

REPORT INFORMATION
  Report Type: 
  Country: None (occurrence: None)
  Receive Date: 20050119
  Receipt Date: 20040406
  Transmission Date: 20050727
  Serious: Yes (Hospitalization)
  Sender: FDA-Public Use
  Company Number: A03200401088

PATIENT
  Age: 81 Year
  Sex: Female
  Weight: 47.6277 kg

DRUGS (6)
  1. PLAVIX [Suspect]
     Indication: CEREBROVASCULAR ACCIDENT
     Dosage: 75 MG QD - ORAL
     Route: 048
     Dates: start: 20030201, end: 20031101
  2. ATENOLOL [Concomitant]
  3. ACETYLSALCYLIC ACID [Concomitant]
  4. CALCIUM GLUCONATE [Concomitant]
  5. NIACIN [Concomitant]
  6. MULTI-VITAMIN [Concomitant]

REACTIONS (1)
  - GASTROINTESTINAL HAEMORRHAGE [None]
